FAERS Safety Report 22303211 (Version 1)
Quarter: 2023Q2

REPORT INFORMATION
  Report Type: Spontaneous
  Country: ES (occurrence: ES)
  Receive Date: 20230510
  Receipt Date: 20230510
  Transmission Date: 20230721
  Serious: Yes (Life-Threatening, Hospitalization, Disabling)
  Sender: FDA-Public Use
  Company Number: None

PATIENT
  Age: 46 Year
  Sex: Male
  Weight: 63 kg

DRUGS (6)
  1. LUTATHERA [Suspect]
     Active Substance: LUTETIUM OXODOTREOTIDE LU-177
     Indication: Pancreatic neuroendocrine tumour metastatic
     Dosage: 3 DOSIS (C1 16.09.2020, C2 25/02/2021, C3 29/04/2021)(STRENGTH 370 MBQ/ML, 1 VIAL DE 25 ML , C1)
     Route: 042
     Dates: start: 20200916, end: 20210429
  2. EVEROLIMUS [Concomitant]
     Active Substance: EVEROLIMUS
     Indication: Pancreatic neuroendocrine tumour metastatic
     Dosage: UNK
     Route: 048
     Dates: start: 201601, end: 202006
  3. LANREOTIDE ACETATE [Concomitant]
     Active Substance: LANREOTIDE ACETATE
     Indication: Pancreatic neuroendocrine tumour metastatic
     Dosage: UNK
     Route: 058
     Dates: start: 201601
  4. TEMOZOLOMIDE [Concomitant]
     Active Substance: TEMOZOLOMIDE
     Indication: Pancreatic neuroendocrine tumour metastatic
     Dosage: UNK (STOP DATE: MAY 2023)
     Route: 048
     Dates: start: 202211
  5. CAPECITABINE [Concomitant]
     Active Substance: CAPECITABINE
     Indication: Pancreatic neuroendocrine tumour metastatic
     Dosage: UNK
     Route: 048
     Dates: start: 2015, end: 201509
  6. CAPECITABINE [Concomitant]
     Active Substance: CAPECITABINE
     Dosage: UNK (STOP DATE: MAY 2023)
     Route: 048
     Dates: start: 202211

REACTIONS (2)
  - Chromosome analysis abnormal [Not Recovered/Not Resolved]
  - Myelodysplastic syndrome [Not Recovered/Not Resolved]

NARRATIVE: CASE EVENT DATE: 20220609
